FAERS Safety Report 18619556 (Version 4)
Quarter: 2021Q3

REPORT INFORMATION
  Report Type: Report from Study
  Country: US (occurrence: US)
  Receive Date: 20201215
  Receipt Date: 20210710
  Transmission Date: 20211014
  Serious: Yes (Hospitalization)
  Sender: FDA-Public Use
  Company Number: NVSC2020US329568

PATIENT
  Age: 50 Year
  Sex: Male

DRUGS (1)
  1. ENTRESTO [Suspect]
     Active Substance: SACUBITRIL\VALSARTAN
     Indication: CARDIAC FAILURE
     Dosage: 100 MG, BID, (49/51MG)
     Route: 048
     Dates: start: 202009

REACTIONS (7)
  - Blood potassium decreased [Unknown]
  - Blood magnesium decreased [Unknown]
  - Hypotension [Recovered/Resolved]
  - Dehydration [Unknown]
  - Blood thyroid stimulating hormone increased [Recovered/Resolved]
  - Ventricular tachycardia [Unknown]
  - Blood calcium decreased [Unknown]

NARRATIVE: CASE EVENT DATE: 20201117
